FAERS Safety Report 7045651-3 (Version None)
Quarter: 2010Q4

REPORT INFORMATION
  Report Type: 
  Country: None (occurrence: None)
  Receive Date: 20101014
  Receipt Date: 20101005
  Transmission Date: 20110411
  Serious: Yes (Hospitalization)
  Sender: FDA-Public Use
  Company Number: DE-ROCHE-732261

PATIENT
  Sex: Male
  Weight: 70 kg

DRUGS (8)
  1. BEVACIZUMAB [Suspect]
     Route: 042
     Dates: start: 20100906, end: 20100906
  2. MCP [Concomitant]
     Route: 048
     Dates: start: 20100901
  3. ZOFRAN [Concomitant]
     Indication: NAUSEA
     Dosage: IF REQUIRED
     Route: 048
     Dates: start: 20100901
  4. LOPERAMIDE [Concomitant]
     Indication: DIARRHOEA
     Dosage: IF REQUIRED
     Route: 048
     Dates: start: 20100901
  5. BALDRIAN [Concomitant]
     Indication: SLEEP DISORDER
     Dosage: IF REQUIRED
     Route: 048
     Dates: start: 20100901
  6. IRINOTECAN HCL [Concomitant]
     Route: 042
     Dates: start: 20100906
  7. FOLINIC ACID [Concomitant]
     Route: 042
     Dates: start: 20100906
  8. FLUOROURACIL [Concomitant]
     Route: 042
     Dates: start: 20100906

REACTIONS (4)
  - ANAL FISSURE [None]
  - DYSPNOEA [None]
  - GENERAL PHYSICAL HEALTH DETERIORATION [None]
  - HAEMORRHOIDS [None]
